FAERS Safety Report 8245272-0 (Version None)
Quarter: 2012Q1

REPORT INFORMATION
  Report Type: 
  Country: None (occurrence: None)
  Receive Date: 20120329
  Receipt Date: 20120229
  Transmission Date: 20120608
  Serious: Yes (Hospitalization)
  Sender: FDA-Public Use
  Company Number: US-ROCHE-762379

PATIENT
  Sex: Female
  Weight: 49.4 kg

DRUGS (1)
  1. VEMURAFENIB [Suspect]
     Indication: METASTATIC MALIGNANT MELANOMA
     Route: 048

REACTIONS (4)
  - MENTAL STATUS CHANGES [None]
  - ATRIAL FLUTTER [None]
  - BLOOD URIC ACID INCREASED [None]
  - ANAEMIA [None]
